FAERS Safety Report 5682511-4 (Version None)
Quarter: 2008Q1

REPORT INFORMATION
  Report Type: 
  Country: None (occurrence: None)
  Receive Date: 20080326
  Receipt Date: 20080326
  Transmission Date: 20080703
  Serious: Yes (Hospitalization)
  Sender: FDA-Public Use
  Company Number: None

PATIENT
  Age: 60 Year
  Sex: Female
  Weight: 94.8018 kg

DRUGS (1)
  1. CIPRO [Suspect]
     Indication: URINARY TRACT INFECTION
     Dosage: 400MG  1 DOSE  IVPB
     Route: 042
     Dates: start: 20080119

REACTIONS (4)
  - AGITATION [None]
  - GRAND MAL CONVULSION [None]
  - HYPOVENTILATION [None]
  - RESPIRATORY DISORDER [None]
